FAERS Safety Report 18757063 (Version 2)
Quarter: 2021Q1

REPORT INFORMATION
  Report Type: Spontaneous
  Country: US (occurrence: US)
  Receive Date: 20210119
  Receipt Date: 20210120
  Transmission Date: 20210419
  Serious: Yes (Death, Hospitalization, Other)
  Sender: FDA-Public Use
  Company Number: US-UNITED THERAPEUTICS-UNT-2021-000757

PATIENT
  Age: 58 Year
  Sex: Female
  Weight: 61.22 kg

DRUGS (2)
  1. REMODULIN [Suspect]
     Active Substance: TREPROSTINIL
     Indication: PULMONARY ARTERIAL HYPERTENSION
     Dosage: UNK, CONTINUING
     Route: 058
     Dates: start: 20190325
  2. REMODULIN [Suspect]
     Active Substance: TREPROSTINIL
     Dosage: 0.1265 ?G/KG, CONTINUING
     Route: 058

REACTIONS (3)
  - Loss of consciousness [Unknown]
  - Cerebrovascular accident [Fatal]
  - Device malfunction [Unknown]

NARRATIVE: CASE EVENT DATE: 20210114
